FAERS Safety Report 9259281 (Version 1)
Quarter: 2013Q2

REPORT INFORMATION
  Report Type: Spontaneous
  Country: US (occurrence: US)
  Receive Date: 20130426
  Receipt Date: 20130426
  Transmission Date: 20140414
  Serious: Yes (Life-Threatening, Other)
  Sender: FDA-Public Use
  Company Number: US-009507513-1304USA015621

PATIENT
  Sex: Female

DRUGS (2)
  1. SAPHRIS [Suspect]
     Dosage: 5 MG, BID
     Route: 060
     Dates: start: 20121002, end: 20121009
  2. ZANAFLEX [Concomitant]
     Dosage: 4 MG, QD

REACTIONS (1)
  - Convulsion [Recovered/Resolved]
